FAERS Safety Report 8797163 (Version 4)
Quarter: 2012Q4

REPORT INFORMATION
  Report Type: Report from Study
  Country: US (occurrence: US)
  Receive Date: 20120919
  Receipt Date: 20121116
  Transmission Date: 20130627
  Serious: Yes (Other)
  Sender: FDA-Public Use
  Company Number: US-ROCHE-1064703

PATIENT
  Age: 60 Year
  Sex: Female
  Weight: 67.19 kg

DRUGS (11)
  1. PEG-INTERFERON ALFA 2A [Suspect]
     Indication: HEPATITIS C
     Route: 058
     Dates: start: 20111113
  2. PEG-INTERFERON ALFA 2A [Suspect]
     Route: 058
     Dates: start: 20120416
  3. RIBAVIRIN [Suspect]
     Indication: HEPATITIS C
     Route: 048
     Dates: start: 20111113
  4. RIBAVIRIN [Suspect]
     Route: 048
     Dates: start: 20120504
  5. RIBAVIRIN [Suspect]
     Route: 048
     Dates: end: 20121009
  6. PROZAC [Concomitant]
     Indication: DEPRESSION
     Route: 048
  7. XANAX [Concomitant]
     Indication: SLEEP DISORDER
     Route: 048
  8. ATARAX [Concomitant]
     Indication: PRURITUS
     Dosage: Dose: every 8 hrs as required
     Route: 048
     Dates: start: 20120302
  9. ESTRADIOL [Concomitant]
     Route: 065
  10. PATANOL [Concomitant]
  11. VAGIFEM [Concomitant]

REACTIONS (24)
  - Retinal tear [Unknown]
  - Red blood cell count decreased [Recovering/Resolving]
  - White blood cell count decreased [Unknown]
  - Fatigue [Unknown]
  - Dizziness [Unknown]
  - Dizziness [Unknown]
  - Confusional state [Unknown]
  - Depression [Unknown]
  - Haemoglobin decreased [Unknown]
  - Mania [Unknown]
  - Tension [Unknown]
  - Bruxism [Unknown]
  - Oropharyngeal pain [Unknown]
  - Visual impairment [Unknown]
  - Vitreous floaters [Unknown]
  - Nausea [Unknown]
  - Nausea [Unknown]
  - Decreased appetite [Unknown]
  - Alopecia [Unknown]
  - Glossodynia [Unknown]
  - Dysgeusia [Unknown]
  - Dry skin [Unknown]
  - Gastrooesophageal reflux disease [Unknown]
  - Gallbladder polyp [Unknown]
